FAERS Safety Report 17050751 (Version 1)
Quarter: 2019Q4

REPORT INFORMATION
  Report Type: Report from Study
  Country: US (occurrence: US)
  Receive Date: 20191119
  Receipt Date: 20191119
  Transmission Date: 20200122
  Serious: No
  Sender: FDA-Public Use
  Company Number: NVSC2019US039367

PATIENT
  Sex: Female

DRUGS (2)
  1. OMNITROPE [Suspect]
     Active Substance: SOMATROPIN
     Indication: HYPOPITUITARISM
     Dosage: 0.65 MG, QD
     Route: 058
     Dates: start: 20191004
  2. OMNITROPE [Suspect]
     Active Substance: SOMATROPIN
     Dosage: 0.65 MG, QD
     Route: 058
     Dates: start: 20191007

REACTIONS (2)
  - Injection site pain [Unknown]
  - Implant site bruising [Unknown]
